FAERS Safety Report 5693571-9 (Version None)
Quarter: 2008Q2

REPORT INFORMATION
  Report Type: 
  Country: None (occurrence: None)
  Receive Date: 20080402
  Receipt Date: 20080402
  Transmission Date: 20081010
  Serious: Yes (Other)
  Sender: FDA-Public Use
  Company Number: None

PATIENT
  Age: 11 Year
  Sex: Male
  Weight: 37.195 kg

DRUGS (2)
  1. SINGULAIR [Suspect]
     Indication: ASTHMA
     Dosage: 5MG NIGHTLY
     Dates: start: 19990305, end: 20080328
  2. SINGULAIR [Suspect]
     Indication: MULTIPLE ALLERGIES
     Dosage: 5MG NIGHTLY
     Dates: start: 19990305, end: 20080328

REACTIONS (17)
  - ABDOMINAL PAIN UPPER [None]
  - AGGRESSION [None]
  - ANXIETY [None]
  - DECREASED INTEREST [None]
  - DIZZINESS [None]
  - EMOTIONAL DISORDER [None]
  - FEAR [None]
  - FRUSTRATION [None]
  - GENERALISED ANXIETY DISORDER [None]
  - HEADACHE [None]
  - MOOD SWINGS [None]
  - MORBID THOUGHTS [None]
  - NAUSEA [None]
  - OBSESSIVE-COMPULSIVE DISORDER [None]
  - TREATMENT FAILURE [None]
  - TREMOR [None]
  - VOMITING [None]
